FAERS Safety Report 7158452-2 (Version None)
Quarter: 2010Q4

REPORT INFORMATION
  Report Type: 
  Country: None (occurrence: None)
  Receive Date: 20101214
  Receipt Date: 20100525
  Transmission Date: 20110411
  Serious: No
  Sender: FDA-Public Use
  Company Number: US-ASTRAZENECA-2010SE24143

PATIENT
  Age: 59 Year
  Sex: Male

DRUGS (6)
  1. CRESTOR [Suspect]
     Indication: BLOOD CHOLESTEROL INCREASED
     Route: 048
     Dates: start: 20100101, end: 20100201
  2. GLUCOPHAGE [Concomitant]
  3. ACTOS [Concomitant]
  4. STARLIX [Concomitant]
  5. VITAMINS [Concomitant]
  6. CO Q 10 [Concomitant]

REACTIONS (6)
  - ARTHRALGIA [None]
  - BACK PAIN [None]
  - CONSTIPATION [None]
  - DIZZINESS [None]
  - NASOPHARYNGITIS [None]
  - PAIN IN EXTREMITY [None]
